FAERS Safety Report 24987200 (Version 1)
Quarter: 2025Q1

REPORT INFORMATION
  Report Type: Spontaneous
  Country: PL (occurrence: PL)
  Receive Date: 20250219
  Receipt Date: 20250219
  Transmission Date: 20250408
  Serious: Yes (Death)
  Sender: PFIZER
  Company Number: PL-PFIZER INC-202500038742

PATIENT
  Sex: Female

DRUGS (1)
  1. IBRANCE [Suspect]
     Active Substance: PALBOCICLIB
     Indication: Breast cancer

REACTIONS (1)
  - Myocardial infarction [Fatal]
